FAERS Safety Report 8291235-9 (Version None)
Quarter: 2012Q2

REPORT INFORMATION
  Report Type: 
  Country: None (occurrence: None)
  Receive Date: 20120417
  Receipt Date: 20120406
  Transmission Date: 20120825
  Serious: Yes (Hospitalization)
  Sender: FDA-Public Use
  Company Number: FR-BRISTOL-MYERS SQUIBB COMPANY-16514291

PATIENT
  Age: 60 Year
  Sex: Male

DRUGS (5)
  1. KEPPRA [Suspect]
     Route: 048
     Dates: start: 20111108, end: 20120227
  2. IMOVANE [Concomitant]
     Dates: start: 20120224, end: 20120227
  3. ABILIFY [Suspect]
     Route: 048
     Dates: start: 20111115, end: 20120220
  4. EFFEXOR [Suspect]
     Dosage: EFFEXOR LP
     Route: 048
     Dates: start: 20120221, end: 20120227
  5. OXAZEPAM [Suspect]
     Dates: end: 20120227

REACTIONS (2)
  - CYTOLYTIC HEPATITIS [None]
  - SERUM FERRITIN INCREASED [None]
